FAERS Safety Report 18160382 (Version 1)
Quarter: 2020Q3

REPORT INFORMATION
  Report Type: Spontaneous
  Country: GB (occurrence: GB)
  Receive Date: 20200817
  Receipt Date: 20200817
  Transmission Date: 20201103
  Serious: Yes (Death, Other)
  Sender: FDA-Public Use
  Company Number: GB-BAUSCH-BL-2020-022876

PATIENT
  Age: 76 Year
  Sex: Female
  Weight: 58 kg

DRUGS (15)
  1. DEXAMETHASONE. [Suspect]
     Active Substance: DEXAMETHASONE
     Indication: PLASMA CELL MYELOMA
     Route: 065
     Dates: start: 20200416, end: 20200416
  2. TINZAPARIN [Concomitant]
     Active Substance: TINZAPARIN
     Indication: PROPHYLAXIS
     Dates: start: 20200416
  3. DOMPERIDONE [Concomitant]
     Active Substance: DOMPERIDONE
     Indication: PROPHYLAXIS
     Dosage: 10 MG, PRN, AS NECESSARY
     Dates: start: 20200416
  4. PARACETAMOL [Concomitant]
     Active Substance: ACETAMINOPHEN
     Indication: PREMEDICATION
     Dosage: 1000 MG (WITH ISATUXIMAB)
     Dates: start: 20200416
  5. FLUCONAZOLE. [Concomitant]
     Active Substance: FLUCONAZOLE
     Indication: PROPHYLAXIS
     Dates: start: 20200416
  6. COLESEVELAM [Concomitant]
     Active Substance: COLESEVELAM
     Indication: BILE ACID MALABSORPTION
     Dates: start: 20200416
  7. ISATUXIMAB [Suspect]
     Active Substance: ISATUXIMAB
     Dosage: 600 MG (14?DAILY)
     Route: 065
     Dates: start: 20200626, end: 20200626
  8. G?CSF [Concomitant]
     Active Substance: GRANULOCYTE COLONY-STIMULATING FACTOR NOS
     Indication: PROPHYLAXIS
     Dates: start: 20200416
  9. LANSOPRAZOLE. [Concomitant]
     Active Substance: LANSOPRAZOLE
     Indication: PROPHYLAXIS
     Dates: start: 20200416
  10. DEXAMETHASONE. [Suspect]
     Active Substance: DEXAMETHASONE
     Route: 065
     Dates: start: 20200626, end: 20200626
  11. COTRIMOXAZOLE [Concomitant]
     Active Substance: SULFAMETHOXAZOLE\TRIMETHOPRIM
     Indication: PROPHYLAXIS
     Dates: start: 20200416
  12. ISATUXIMAB [Suspect]
     Active Substance: ISATUXIMAB
     Indication: PLASMA CELL MYELOMA
     Dosage: 600 MG (14?DAILY)
     Route: 065
     Dates: start: 20200416, end: 20200416
  13. POMALIDOMIDE [Suspect]
     Active Substance: POMALIDOMIDE
     Indication: PLASMA CELL MYELOMA
     Dosage: 4 MG (OD 21/28D)
     Route: 065
     Dates: start: 20200416, end: 20200416
  14. ACICLOVIR [Concomitant]
     Active Substance: ACYCLOVIR
     Indication: PROPHYLAXIS
     Dates: start: 20200416
  15. POMALIDOMIDE [Suspect]
     Active Substance: POMALIDOMIDE
     Dosage: 4 MG (OD 21/28D)
     Route: 065
     Dates: start: 20200626, end: 20200626

REACTIONS (2)
  - Disease recurrence [Fatal]
  - Volvulus [Fatal]

NARRATIVE: CASE EVENT DATE: 20200627
